FAERS Safety Report 21722167 (Version 1)
Quarter: 2022Q4

REPORT INFORMATION
  Report Type: Spontaneous
  Country: CN (occurrence: CN)
  Receive Date: 20221213
  Receipt Date: 20221213
  Transmission Date: 20230113
  Serious: Yes (Other)
  Sender: FDA-Public Use
  Company Number: CN-PFIZER INC-PV202200116294

PATIENT
  Age: 13 Year
  Sex: Male
  Weight: 43 kg

DRUGS (7)
  1. METHOTREXATE SODIUM [Suspect]
     Active Substance: METHOTREXATE SODIUM
     Indication: Acute lymphocytic leukaemia
     Dosage: 0.5 G RAPIDLY INTRAVENOUSLY DRIPPED WITHIN 30 MIN, REMAINING DOSE WAS DRIPPED EVENLY WITHIN 23.5 H
     Route: 041
  2. METHOTREXATE SODIUM [Suspect]
     Active Substance: METHOTREXATE SODIUM
     Dosage: 12.5 MG
     Route: 037
  3. CYTARABINE [Concomitant]
     Active Substance: CYTARABINE
     Indication: Acute lymphocytic leukaemia
     Dosage: 35 MG
     Route: 037
  4. DEXAMETHASONE [Concomitant]
     Active Substance: DEXAMETHASONE
     Indication: Acute lymphocytic leukaemia
     Dosage: 5 MG
     Route: 037
  5. LEUCOVORIN CALCIUM [Concomitant]
     Active Substance: LEUCOVORIN CALCIUM
     Indication: Therapeutic procedure
     Dosage: 30 MG/M2(FIRST DOSE)
     Route: 040
  6. LEUCOVORIN CALCIUM [Concomitant]
     Active Substance: LEUCOVORIN CALCIUM
     Dosage: 15 MG/M2, 4X/DAY(EVERY 6 H)
     Route: 040
  7. THIOGUANINE [Concomitant]
     Active Substance: THIOGUANINE
     Dosage: 50 MG/M2(FOR 7 DAYS)
     Route: 048

REACTIONS (1)
  - Acute kidney injury [Recovered/Resolved]
